FAERS Safety Report 7528095-7 (Version None)
Quarter: 2011Q2

REPORT INFORMATION
  Report Type: 
  Country: None (occurrence: None)
  Receive Date: 20110607
  Receipt Date: 20110525
  Transmission Date: 20111010
  Serious: Yes (Hospitalization)
  Sender: FDA-Public Use
  Company Number: IT-ELI_LILLY_AND_COMPANY-IT201105007423

PATIENT
  Sex: Male

DRUGS (2)
  1. CISPLATIN [Concomitant]
     Indication: LUNG ADENOCARCINOMA
     Dosage: 130 MG, CYCLE
     Route: 042
     Dates: start: 20110414, end: 20110502
  2. ALIMTA [Suspect]
     Indication: ADENOCARCINOMA
     Dosage: 900 MG/ CYCLE
     Route: 042
     Dates: start: 20110414, end: 20110520

REACTIONS (3)
  - PLEURISY [None]
  - NEUTROPENIA [None]
  - PULMONARY FIBROSIS [None]
